FAERS Safety Report 8418902-8 (Version None)
Quarter: 2012Q2

REPORT INFORMATION
  Report Type: 
  Country: None (occurrence: None)
  Receive Date: 20120607
  Receipt Date: 20120604
  Transmission Date: 20120825
  Serious: Yes (Hospitalization)
  Sender: FDA-Public Use
  Company Number: US-ROCHE-1075309

PATIENT
  Sex: Male

DRUGS (4)
  1. PREDNISONE TAB [Suspect]
     Indication: RENAL TRANSPLANT
     Dates: start: 20061011
  2. NORVASC [Concomitant]
     Dates: start: 20061011
  3. BELATACEPT [Suspect]
     Indication: RENAL TRANSPLANT
     Dosage: LESS INTENSIVE DOSING REGIMEN
     Route: 048
     Dates: start: 20061007
  4. CELLCEPT [Suspect]
     Indication: RENAL TRANSPLANT
     Dates: start: 20061007

REACTIONS (2)
  - CELLULITIS [None]
  - JOINT EFFUSION [None]
